FAERS Safety Report 15888313 (Version 5)
Quarter: 2019Q1

REPORT INFORMATION
  Report Type: Spontaneous
  Country: US (occurrence: US)
  Receive Date: 20190130
  Receipt Date: 20190320
  Transmission Date: 20190417
  Serious: Yes (Other)
  Sender: FDA-Public Use
  Company Number: US-HORIZON-KRY-0044-2019

PATIENT
  Age: 40 Year
  Sex: Male

DRUGS (7)
  1. KRYSTEXXA [Suspect]
     Active Substance: PEGLOTICASE
     Indication: GOUT
     Dosage: EVERY 2 WEEKS
     Dates: start: 20181214
  2. TYLENOL [Concomitant]
     Active Substance: ACETAMINOPHEN
     Indication: PREMEDICATION
  3. BENADRYL [Concomitant]
     Active Substance: DIPHENHYDRAMINE HYDROCHLORIDE
     Indication: PREMEDICATION
  4. SINGULAIR [Concomitant]
     Active Substance: MONTELUKAST SODIUM
     Indication: PREMEDICATION
  5. SOLU-MEDROL [Concomitant]
     Active Substance: METHYLPREDNISOLONE SODIUM SUCCINATE
     Indication: PREMEDICATION
  6. COLCRYS [Concomitant]
     Active Substance: COLCHICINE
  7. PEPCID [Concomitant]
     Active Substance: FAMOTIDINE
     Indication: PREMEDICATION

REACTIONS (4)
  - Therapeutic response decreased [Unknown]
  - Insurance issue [Unknown]
  - Therapy cessation [Unknown]
  - Infusion related reaction [Recovered/Resolved]

NARRATIVE: CASE EVENT DATE: 20181228
